FAERS Safety Report 8843492 (Version 1)
Quarter: 2012Q4

REPORT INFORMATION
  Report Type: 
  Country: US (occurrence: US)
  Receive Date: 20121016
  Receipt Date: 20121016
  Transmission Date: 20130627
  Serious: Yes (Hospitalization, Other)
  Sender: FDA-Public Use
  Company Number: US-VALEANT-2012VX004525

PATIENT
  Age: 42 Year
  Sex: Female
  Weight: 72 kg

DRUGS (12)
  1. LIBRIUM [Suspect]
     Indication: SHAKING
     Route: 065
     Dates: start: 201209
  2. LIBRIUM [Suspect]
     Indication: SPEECH DISORDER
     Route: 065
     Dates: start: 201209
  3. LIBRIUM [Suspect]
     Indication: DISTURBANCE IN ATTENTION
     Route: 065
     Dates: start: 201209
  4. LIBRIUM [Suspect]
     Indication: THINKING ABNORMAL
     Route: 065
     Dates: start: 201209
  5. DILANTIN [Suspect]
     Indication: HALLUCINATIONS
     Route: 065
     Dates: start: 20120901, end: 20120914
  6. DILANTIN [Suspect]
     Indication: SEIZURES
     Route: 065
     Dates: start: 20120901, end: 20120914
  7. DILANTIN [Suspect]
     Indication: FEELING ABNORMAL
     Route: 065
     Dates: start: 20120901, end: 20120914
  8. DILANTIN [Suspect]
     Indication: DYSPNOEA
     Route: 065
     Dates: start: 20120901, end: 20120914
  9. DILANTIN [Suspect]
     Indication: TREMOR
     Route: 065
     Dates: start: 20120901, end: 20120914
  10. ASPIRIN [Suspect]
     Indication: HEADACHE
     Route: 065
     Dates: start: 201209
  11. OXYGEN [Concomitant]
     Route: 065
     Dates: start: 201209
  12. UNSPECIFIED MEDICATION [Concomitant]
     Route: 042

REACTIONS (6)
  - Hallucination [Not Recovered/Not Resolved]
  - Convulsion [Not Recovered/Not Resolved]
  - Feeling abnormal [Recovered/Resolved]
  - Dyspnoea [Not Recovered/Not Resolved]
  - Tremor [Not Recovered/Not Resolved]
  - Drug administration error [Unknown]
